FAERS Safety Report 6816827-2 (Version None)
Quarter: 2010Q3

REPORT INFORMATION
  Report Type: 
  Country: None (occurrence: None)
  Receive Date: 20100706
  Receipt Date: 20100629
  Transmission Date: 20110219
  Serious: Yes (Death, Hospitalization)
  Sender: FDA-Public Use
  Company Number: ES-JNJFOC-20100700086

PATIENT
  Age: 80 Year
  Sex: Male

DRUGS (2)
  1. LOPERAMIDE [Suspect]
     Indication: DIARRHOEA
     Route: 065
  2. CIPROFLOXACIN [Concomitant]
     Indication: DIARRHOEA

REACTIONS (2)
  - CRONKHITE-CANADA SYNDROME [None]
  - DRUG INEFFECTIVE [None]
